FAERS Safety Report 7427435-7 (Version None)
Quarter: 2011Q2

REPORT INFORMATION
  Report Type: 
  Country: None (occurrence: None)
  Receive Date: 20110420
  Receipt Date: 20110414
  Transmission Date: 20111010
  Serious: Yes (Hospitalization)
  Sender: FDA-Public Use
  Company Number: US-GILEAD-2010-0034385

PATIENT
  Sex: Female

DRUGS (3)
  1. COUMADIN [Concomitant]
  2. LETAIRIS [Suspect]
     Indication: PULMONARY HYPERTENSION
     Route: 048
  3. LETAIRIS [Suspect]
     Dates: start: 20080924, end: 20101116

REACTIONS (3)
  - PNEUMONIA [None]
  - DYSPNOEA [None]
  - FATIGUE [None]
